FAERS Safety Report 7198304-5 (Version None)
Quarter: 2010Q4

REPORT INFORMATION
  Report Type: 
  Country: None (occurrence: None)
  Receive Date: 20101227
  Receipt Date: 20101214
  Transmission Date: 20110411
  Serious: Yes (Other)
  Sender: FDA-Public Use
  Company Number: PHHY2010BR85528

PATIENT
  Age: 20 Year
  Sex: Female

DRUGS (1)
  1. DESERILA [Suspect]
     Indication: MIGRAINE
     Route: 048

REACTIONS (7)
  - CRYING [None]
  - DIZZINESS [None]
  - DRUG INEFFECTIVE [None]
  - HALLUCINATION [None]
  - NAUSEA [None]
  - PAIN [None]
  - PARAESTHESIA [None]
